FAERS Safety Report 23677615 (Version 1)
Quarter: 2024Q1

REPORT INFORMATION
  Report Type: Spontaneous
  Country: AU (occurrence: AU)
  Receive Date: 20240327
  Receipt Date: 20240327
  Transmission Date: 20240410
  Serious: Yes (Other)
  Sender: FDA-Public Use
  Company Number: AU-002147023-NVSC2024AU059724

PATIENT
  Sex: Female

DRUGS (1)
  1. NILOTINIB [Suspect]
     Active Substance: NILOTINIB
     Indication: Product used for unknown indication
     Dosage: UNK
     Route: 065

REACTIONS (1)
  - Pancreatic failure [Unknown]
